FAERS Safety Report 6812880-0 (Version None)
Quarter: 2010Q3

REPORT INFORMATION
  Report Type: 
  Country: None (occurrence: None)
  Receive Date: 20100701
  Receipt Date: 20100623
  Transmission Date: 20110219
  Serious: Yes (Other)
  Sender: FDA-Public Use
  Company Number: CA-JNJFOC-20100606363

PATIENT
  Sex: Female
  Weight: 80 kg

DRUGS (3)
  1. REMICADE [Suspect]
     Indication: CROHN'S DISEASE
     Route: 042
  2. TYLENOL [Concomitant]
     Route: 048
  3. SOLU-CORTEF [Concomitant]
     Route: 042

REACTIONS (2)
  - CATARACT [None]
  - URINARY TRACT INFECTION [None]
